FAERS Safety Report 4514175-7 (Version None)
Quarter: 2004Q4

REPORT INFORMATION
  Report Type: 
  Country: None (occurrence: None)
  Receive Date: 20041129
  Receipt Date: 20041111
  Transmission Date: 20050328
  Serious: Yes (Other)
  Sender: FDA-Public Use
  Company Number: TRP_0032_2004

PATIENT
  Age: 47 Year
  Sex: Male

DRUGS (5)
  1. RIBASPHERE [Suspect]
     Indication: HEPATITIS C
     Dates: start: 20040827
  2. PEG-INTRON [Suspect]
     Indication: HEPATITIS C
     Dates: start: 20040827
  3. AMIODARONE HYDROCHLORIDE [Concomitant]
  4. HYOSCYAMINE [Concomitant]
  5. WARFARIN SODIUM [Concomitant]

REACTIONS (2)
  - ATRIAL FIBRILLATION [None]
  - CONDITION AGGRAVATED [None]
